FAERS Safety Report 25399746 (Version 1)
Quarter: 2025Q2

REPORT INFORMATION
  Report Type: Report from Study
  Country: US (occurrence: US)
  Receive Date: 20250605
  Receipt Date: 20250605
  Transmission Date: 20250717
  Serious: No
  Sender: ACADIA PHARMACEUTICALS
  Company Number: US-ACADIA PHARMACEUTICALS INC.-ACA-2025-PIM-006569

PATIENT
  Sex: Male

DRUGS (21)
  1. NUPLAZID [Suspect]
     Active Substance: PIMAVANSERIN TARTRATE
     Indication: Parkinson^s disease
     Dosage: 34 MILLIGRAM, QD
     Route: 048
  2. LEVOTHYROXINE [Concomitant]
     Active Substance: LEVOTHYROXINE
  3. VITAMIN C [Concomitant]
     Active Substance: ASCORBIC ACID
  4. COENZYME Q10 [Concomitant]
     Active Substance: DIETARY SUPPLEMENT\UBIDECARENONE
  5. VITAMIN D3 [Concomitant]
     Active Substance: CHOLECALCIFEROL
  6. RYTARY [Concomitant]
     Active Substance: CARBIDOPA\LEVODOPA
  7. HYDROCORTISONE [Concomitant]
     Active Substance: HYDROCORTISONE
  8. MOMETASONE [Concomitant]
     Active Substance: MOMETASONE
  9. QUETIAPINE FUMARATE [Concomitant]
     Active Substance: QUETIAPINE FUMARATE
  10. ROPINIROLE [Concomitant]
     Active Substance: ROPINIROLE
  11. SYSTANE (HYPROMELLOSE 2910 (4000 MPA.S)) [Concomitant]
     Active Substance: HYPROMELLOSE 2910 (4000 MPA.S)
  12. XIIDRA [Concomitant]
     Active Substance: LIFITEGRAST
  13. CARBIDOPA LEVODOPA [Concomitant]
     Active Substance: CARBIDOPA\LEVODOPA
  14. SILDENAFIL CITRATE [Concomitant]
     Active Substance: SILDENAFIL CITRATE
  15. OLOPATADINE [Concomitant]
     Active Substance: OLOPATADINE
  16. MYRBETRIQ [Concomitant]
     Active Substance: MIRABEGRON
  17. LINZESS [Concomitant]
     Active Substance: LINACLOTIDE
  18. AZELAST [Concomitant]
  19. MONTELUKAST [Concomitant]
     Active Substance: MONTELUKAST
  20. FUROSEMIDE [Concomitant]
     Active Substance: FUROSEMIDE
  21. ELIQUIS [Concomitant]
     Active Substance: APIXABAN

REACTIONS (1)
  - Drug ineffective [Unknown]
